FAERS Safety Report 7360616-X (Version None)
Quarter: 2011Q1

REPORT INFORMATION
  Report Type: 
  Country: None (occurrence: None)
  Receive Date: 20110310
  Receipt Date: 20110224
  Transmission Date: 20110831
  Serious: Yes (Life-Threatening, Hospitalization)
  Sender: FDA-Public Use
  Company Number: 844999

PATIENT
  Age: 76 Year
  Sex: Male

DRUGS (12)
  1. IRINOTECAN HYDROCHLORIDE [Suspect]
     Indication: COLON CANCER STAGE IV
     Dosage: 620 MG MILLIGRAM(S), INTRAVENOUS
     Route: 042
     Dates: start: 20110111, end: 20110111
  2. BISOPROLOL FUMARATE [Concomitant]
  3. ISOSORBIDE MONONITRATE [Concomitant]
  4. (FERROUS SULPHATE /00023503/) [Concomitant]
  5. IRBESARTAN [Concomitant]
  6. AMLODIPINE BESYLATE [Concomitant]
  7. ONDANSETRON [Suspect]
     Indication: PROPHYLAXIS OF NAUSEA AND VOMITING
     Dosage: 8 MG MILLIGRAM(S), INTRAVENOUS
     Route: 042
     Dates: start: 20110111, end: 20110111
  8. DEXAMETHASONE [Suspect]
     Indication: PROPHYLAXIS OF NAUSEA AND VOMITING
     Dosage: 8 MG MILLIGRAM(S), ORAL
     Route: 048
     Dates: start: 20110111, end: 20110113
  9. ASPIRIN [Concomitant]
  10. (GLICLAZIDE) [Concomitant]
  11. (METFORMIN) [Concomitant]
  12. PRAVASTATIN [Concomitant]

REACTIONS (3)
  - ACUTE MYOCARDIAL INFARCTION [None]
  - DIARRHOEA [None]
  - VOMITING [None]
